FAERS Safety Report 6466525-2 (Version None)
Quarter: 2009Q4

REPORT INFORMATION
  Report Type: 
  Country: None (occurrence: None)
  Receive Date: 20091202
  Receipt Date: 20091124
  Transmission Date: 20100525
  Serious: Yes (Hospitalization, Other)
  Sender: FDA-Public Use
  Company Number: GB-ASTRAZENECA-2009SE24524

PATIENT
  Age: 71 Year
  Sex: Female

DRUGS (10)
  1. ATENOLOL [Suspect]
     Route: 048
  2. ASPIRIN [Interacting]
  3. ALLOPURINOL [Interacting]
     Indication: GOUT
     Route: 048
  4. BENDROFLUMETHIAZIDE [Interacting]
  5. CLOPIDOGREL [Interacting]
  6. DOXAZOSIN [Interacting]
  7. GLICLAZIDE [Interacting]
     Indication: DIABETES MELLITUS
     Route: 048
  8. IRBESARTAN [Interacting]
  9. METFORMIN HCL [Interacting]
     Indication: DIABETES MELLITUS
  10. PERINDOPRIL [Interacting]
     Route: 048

REACTIONS (4)
  - DRUG INTERACTION [None]
  - HYPOGLYCAEMIA [None]
  - LACTIC ACIDOSIS [None]
  - RENAL FAILURE ACUTE [None]
